FAERS Safety Report 8543142-1 (Version None)
Quarter: 2012Q3

REPORT INFORMATION
  Report Type: 
  Country: None (occurrence: None)
  Receive Date: 20120727
  Receipt Date: 20120502
  Transmission Date: 20120928
  Serious: No
  Sender: FDA-Public Use
  Company Number: US-MYLANLABS-2012S1009052

PATIENT
  Age: 33 Year
  Sex: Female

DRUGS (2)
  1. CLONAZEPAM [Suspect]
     Indication: PANIC DISORDER
     Route: 048
     Dates: start: 20111101
  2. LEVOTHYROXINE SODIUM [Suspect]
     Indication: HYPOTHYROIDISM
     Route: 048
     Dates: start: 20120101

REACTIONS (3)
  - REACTION TO DRUG EXCIPIENTS [None]
  - ABDOMINAL PAIN [None]
  - DIARRHOEA [None]
